FAERS Safety Report 17495917 (Version 1)
Quarter: 2020Q1

REPORT INFORMATION
  Report Type: Spontaneous
  Country: US (occurrence: US)
  Receive Date: 20200304
  Receipt Date: 20200304
  Transmission Date: 20200409
  Serious: No
  Sender: FDA-Public Use
  Company Number: None

PATIENT
  Age: 39 Year
  Sex: Female
  Weight: 73.8 kg

DRUGS (1)
  1. CITALOPRAM [Suspect]
     Active Substance: CITALOPRAM HYDROBROMIDE
     Indication: DEPRESSION
     Dosage: ?          QUANTITY:1 TABLET(S);?
     Route: 048
     Dates: start: 20180401

REACTIONS (11)
  - Sensory overload [None]
  - Back pain [None]
  - Irritability [None]
  - Restlessness [None]
  - Withdrawal syndrome [None]
  - Fatigue [None]
  - Hyperacusis [None]
  - Emotional distress [None]
  - Lethargy [None]
  - Panic attack [None]
  - Blepharospasm [None]

NARRATIVE: CASE EVENT DATE: 20200223
